FAERS Safety Report 5117347-6 (Version None)
Quarter: 2006Q3

REPORT INFORMATION
  Report Type: 
  Country: None (occurrence: None)
  Receive Date: 20060926
  Receipt Date: 20060901
  Transmission Date: 20061208
  Serious: Yes (Hospitalization)
  Sender: FDA-Public Use
  Company Number: 2006SP001150

PATIENT
  Age: 45 Year
  Sex: Male

DRUGS (4)
  1. PEG-INTRON [Suspect]
     Indication: HEPATITIS C
     Dosage: SC
     Route: 058
     Dates: start: 20060729, end: 20060826
  2. RIBAVIRIN [Suspect]
     Indication: HEPATITIS C
     Dosage: PO
     Route: 048
     Dates: start: 20060729, end: 20060826
  3. PREVACID [Concomitant]
  4. PROPRANOLOL HYDROCHLORIDE [Concomitant]

REACTIONS (5)
  - HAEMATEMESIS [None]
  - HAEMOGLOBIN DECREASED [None]
  - PANCREATITIS [None]
  - PLATELET COUNT DECREASED [None]
  - WHITE BLOOD CELL COUNT DECREASED [None]
